FAERS Safety Report 13059322 (Version 4)
Quarter: 2019Q1

REPORT INFORMATION
  Report Type: Spontaneous
  Country: FR (occurrence: FR)
  Receive Date: 20161223
  Receipt Date: 20190326
  Transmission Date: 20190417
  Serious: Yes (Hospitalization)
  Sender: FDA-Public Use
  Company Number: PHHY2016FR176442

PATIENT
  Age: 17 Year
  Sex: Male
  Weight: 60 kg

DRUGS (7)
  1. RITALINE [Suspect]
     Active Substance: METHYLPHENIDATE HYDROCHLORIDE
     Indication: PRODUCT USED FOR UNKNOWN INDICATION
     Dosage: 300 MG, ONCE/SINGLE
     Route: 048
     Dates: start: 20161120, end: 20161120
  2. AMOXICILLIN. [Concomitant]
     Active Substance: AMOXICILLIN
     Indication: LYMPHADENOPATHY
     Dosage: UNK
     Route: 065
  3. ZYRTEC [Suspect]
     Active Substance: CETIRIZINE HYDROCHLORIDE
     Indication: PRODUCT USED FOR UNKNOWN INDICATION
     Dosage: 70 MG, ONCE/SINGLE
     Route: 048
     Dates: start: 20161120, end: 20161120
  4. ALCOHOL. [Suspect]
     Active Substance: ALCOHOL
     Indication: PRODUCT USED FOR UNKNOWN INDICATION
     Dosage: DOSAGE FORM: UNSPECIFIED
     Route: 065
  5. PARACETAMOL [Suspect]
     Active Substance: ACETAMINOPHEN
     Indication: PRODUCT USED FOR UNKNOWN INDICATION
     Dosage: 10 G, ONCE/SINGLE
     Route: 048
     Dates: start: 20161120, end: 20161120
  6. CETIRIZINE [Suspect]
     Active Substance: CETIRIZINE HYDROCHLORIDE
     Indication: PRODUCT USED FOR UNKNOWN INDICATION
     Dosage: 30 MG, ONCE/SINGLE
     Route: 048
     Dates: start: 20161120, end: 20161120
  7. RUPATADINE [Suspect]
     Active Substance: RUPATADINE
     Indication: PRODUCT USED FOR UNKNOWN INDICATION
     Dosage: 50 MG, ONCE/SINGLE
     Route: 048
     Dates: start: 20161120, end: 20161120

REACTIONS (5)
  - Intentional overdose [Unknown]
  - Sinus tachycardia [Recovered/Resolved]
  - Mydriasis [Recovered/Resolved]
  - Dyspnoea [Recovered/Resolved]
  - Tremor [Recovered/Resolved]

NARRATIVE: CASE EVENT DATE: 20161120
